FAERS Safety Report 7361271-5 (Version None)
Quarter: 2011Q1

REPORT INFORMATION
  Report Type: 
  Country: None (occurrence: None)
  Receive Date: 20110318
  Receipt Date: 20110310
  Transmission Date: 20110831
  Serious: Yes (Hospitalization)
  Sender: FDA-Public Use
  Company Number: A0747610A

PATIENT
  Age: 50 Year
  Sex: Female
  Weight: 76.4 kg

DRUGS (7)
  1. AVANDIA [Suspect]
     Dosage: 4MG PER DAY
     Route: 065
     Dates: start: 20030101, end: 20080101
  2. CELEBREX [Concomitant]
  3. LIPITOR [Concomitant]
  4. AVALIDE [Concomitant]
  5. GLUCOVANCE [Concomitant]
  6. PREVACID [Concomitant]
  7. ACTONEL [Concomitant]

REACTIONS (5)
  - BLINDNESS [None]
  - CEREBROVASCULAR ACCIDENT [None]
  - TACHYCARDIA [None]
  - TRANSIENT ISCHAEMIC ATTACK [None]
  - OEDEMA [None]
